FAERS Safety Report 10989495 (Version 1)
Quarter: 2015Q2

REPORT INFORMATION
  Report Type: Spontaneous
  Country: US (occurrence: US)
  Receive Date: 20150406
  Receipt Date: 20150406
  Transmission Date: 20150821
  Serious: No
  Sender: FDA-Public Use
  Company Number: US-ASTRAZENECA-2015SE29412

PATIENT
  Age: 29007 Day
  Sex: Female
  Weight: 66.2 kg

DRUGS (3)
  1. BLOOD PRESSURE MEDICATION [Concomitant]
     Active Substance: UNSPECIFIED INGREDIENT
     Indication: BLOOD PRESSURE ABNORMAL
  2. SYMBICORT [Suspect]
     Active Substance: BUDESONIDE\FORMOTEROL FUMARATE DIHYDRATE
     Indication: DYSPNOEA
     Dosage: TWO PUFFS TWICE DAILY
     Route: 055
     Dates: start: 2009
  3. PULMICORT TURBUHALER [Suspect]
     Active Substance: BUDESONIDE
     Route: 055

REACTIONS (4)
  - Intentional product misuse [Unknown]
  - Fatigue [Unknown]
  - Dyspnoea [Unknown]
  - Weight decreased [Unknown]

NARRATIVE: CASE EVENT DATE: 201501
